FAERS Safety Report 13372948 (Version 1)
Quarter: 2017Q1

REPORT INFORMATION
  Report Type: Spontaneous
  Country: US (occurrence: US)
  Receive Date: 20170326
  Receipt Date: 20170326
  Transmission Date: 20170429
  Serious: Yes (Life-Threatening, Hospitalization, Disabling)
  Sender: FDA-Public Use
  Company Number: None

PATIENT
  Age: 46 Year
  Sex: Female
  Weight: 96.3 kg

DRUGS (4)
  1. OMEPRAZOLE. [Concomitant]
     Active Substance: OMEPRAZOLE
  2. MAGNESIUM [Concomitant]
     Active Substance: MAGNESIUM
  3. ESTRACE [Concomitant]
     Active Substance: ESTRADIOL
  4. TAMIFLU [Suspect]
     Active Substance: OSELTAMIVIR PHOSPHATE
     Indication: INFLUENZA

REACTIONS (8)
  - Confusional state [None]
  - Impaired work ability [None]
  - Feeling abnormal [None]
  - Hyperhidrosis [None]
  - Hypothermia [None]
  - Dizziness [None]
  - Speech disorder [None]
  - Rash macular [None]

NARRATIVE: CASE EVENT DATE: 20160314
